FAERS Safety Report 9360847 (Version 1)
Quarter: 2013Q2

REPORT INFORMATION
  Report Type: Spontaneous
  Country: US (occurrence: US)
  Receive Date: 20130621
  Receipt Date: 20130621
  Transmission Date: 20140414
  Serious: Yes (Other)
  Sender: FDA-Public Use
  Company Number: US-SANOFI-AVENTIS-2013SA062111

PATIENT
  Age: 77 Year
  Sex: Female

DRUGS (6)
  1. LANTUS SOLOSTAR [Suspect]
     Indication: TYPE 2 DIABETES MELLITUS
     Dosage: DOSE:25 UNIT(S)
     Route: 058
     Dates: start: 201208
  2. SOLOSTAR [Suspect]
     Indication: TYPE 2 DIABETES MELLITUS
     Dates: start: 201208
  3. SIMVASTATIN [Concomitant]
  4. ALLOPURINOL [Concomitant]
     Dates: start: 2012
  5. MICARDIS HCT [Concomitant]
     Indication: DIABETES MELLITUS
  6. ATENOLOL [Concomitant]
     Indication: BLOOD PRESSURE
     Dates: start: 201303

REACTIONS (1)
  - Arthropathy [Unknown]
